FAERS Safety Report 25622501 (Version 1)
Quarter: 2025Q3

REPORT INFORMATION
  Report Type: Spontaneous
  Country: CN (occurrence: CN)
  Receive Date: 20250730
  Receipt Date: 20250730
  Transmission Date: 20251021
  Serious: Yes (Other)
  Sender: PFIZER
  Company Number: CN-PFIZER INC-PV202500089729

PATIENT
  Age: 63 Year
  Sex: Female
  Weight: 52 kg

DRUGS (4)
  1. ZYVOX [Suspect]
     Active Substance: LINEZOLID
     Indication: Tuberculosis
     Dosage: 0.6 G, 1X/DAY
     Route: 048
     Dates: start: 20250707, end: 20250710
  2. RIFAMPIN [Suspect]
     Active Substance: RIFAMPIN
     Indication: Tuberculosis
     Dosage: 0.45 G, 1X/DAY
     Route: 041
     Dates: start: 20250707, end: 20250710
  3. ISONIAZID [Concomitant]
     Active Substance: ISONIAZID
     Indication: Tuberculosis
     Dosage: 0.3 G, 1X/DAY
     Route: 048
     Dates: start: 20250707
  4. LEVOFLOXACIN [Concomitant]
     Active Substance: LEVOFLOXACIN
     Indication: Tuberculosis
     Dosage: 0.5 G, 1X/DAY
     Route: 041
     Dates: start: 20250707

REACTIONS (4)
  - Pseudomembranous colitis [Recovering/Resolving]
  - Diarrhoea [Recovering/Resolving]
  - Abdominal pain [Recovering/Resolving]
  - Off label use [Unknown]

NARRATIVE: CASE EVENT DATE: 20250707
